FAERS Safety Report 16458924 (Version 1)
Quarter: 2019Q2

REPORT INFORMATION
  Report Type: Spontaneous
  Country: US (occurrence: US)
  Receive Date: 20190620
  Receipt Date: 20190620
  Transmission Date: 20190711
  Serious: No
  Sender: FDA-Public Use
  Company Number: US-THERAPEUTICSMD-2019TMD00995

PATIENT
  Sex: Female

DRUGS (3)
  1. IMVEXXY [Suspect]
     Active Substance: ESTRADIOL
     Indication: VULVOVAGINAL DRYNESS
     Dosage: 10 ?G, 2X/WEEK AT BEDTIME
     Route: 067
     Dates: start: 201904
  2. THYROID MEDICATION [Concomitant]
     Active Substance: UNSPECIFIED INGREDIENT
  3. IMVEXXY [Suspect]
     Active Substance: ESTRADIOL
     Indication: ATROPHY
     Dosage: UNK

REACTIONS (13)
  - Weight loss poor [Not Recovered/Not Resolved]
  - Drug ineffective [Not Recovered/Not Resolved]
  - Product residue present [Not Recovered/Not Resolved]
  - Heart rate irregular [Recovered/Resolved]
  - Product dose omission [Recovered/Resolved]
  - Product use complaint [Not Recovered/Not Resolved]
  - Salivary gland enlargement [Recovered/Resolved]
  - Heart rate increased [Recovered/Resolved]
  - Lymphadenopathy [Recovered/Resolved]
  - Weight increased [Not Recovered/Not Resolved]
  - Dry skin [Recovering/Resolving]
  - Depressed mood [Not Recovered/Not Resolved]
  - Pruritus [Recovering/Resolving]

NARRATIVE: CASE EVENT DATE: 2019
